FAERS Safety Report 5284357-8 (Version None)
Quarter: 2007Q1

REPORT INFORMATION
  Report Type: 
  Country: None (occurrence: None)
  Receive Date: 20070327
  Receipt Date: 20070315
  Transmission Date: 20070707
  Serious: Yes (Other)
  Sender: FDA-Public Use
  Company Number: 238409

PATIENT
  Age: 10 Year
  Sex: Male

DRUGS (1)
  1. NUTROPIN AQ(SOMATROPIN) POWDER FOR INJECTION, 10MG [Suspect]
     Indication: GROWTH HORMONE DEFICIENCY
     Dosage: 0.03 MG/KG, QD, SUBCUTANEOUS
     Route: 058

REACTIONS (1)
  - TOURETTE'S DISORDER [None]
